FAERS Safety Report 13691687 (Version 7)
Quarter: 2018Q4

REPORT INFORMATION
  Report Type: Spontaneous
  Country: US (occurrence: US)
  Receive Date: 20170626
  Receipt Date: 20181227
  Transmission Date: 20190204
  Serious: No
  Sender: FDA-Public Use
  Company Number: US-ACTELION-A-US2017-155828

PATIENT
  Age: 60 Year
  Sex: Female

DRUGS (4)
  1. TRACLEER [Suspect]
     Active Substance: BOSENTAN
     Indication: PULMONARY ARTERIAL HYPERTENSION
     Dosage: 125 MG, BID
     Route: 048
     Dates: start: 20111124
  2. ADEMPAS [Concomitant]
     Active Substance: RIOCIGUAT
  3. ORENITRAM [Concomitant]
     Active Substance: TREPROSTINIL
     Dosage: 9 MG, TID
  4. REMODULIN [Suspect]
     Active Substance: TREPROSTINIL
     Indication: PRODUCT USED FOR UNKNOWN INDICATION
     Dosage: UNK
     Route: 058
     Dates: end: 20181122

REACTIONS (11)
  - Headache [Unknown]
  - Dyspnoea [Unknown]
  - Catheter site pain [Unknown]
  - Pruritus [Unknown]
  - Catheter site erythema [Unknown]
  - Diarrhoea [Unknown]
  - Jaw disorder [Unknown]
  - Catheter site inflammation [Not Recovered/Not Resolved]
  - Catheter management [Unknown]
  - Retching [Unknown]
  - Nausea [Unknown]

NARRATIVE: CASE EVENT DATE: 20180521
